FAERS Safety Report 11588153 (Version 2)
Quarter: 2015Q4

REPORT INFORMATION
  Report Type: Spontaneous
  Country: US (occurrence: US)
  Receive Date: 20151002
  Receipt Date: 20151026
  Transmission Date: 20160304
  Serious: No
  Sender: FDA-Public Use
  Company Number: US-009507513-1509USA015043

PATIENT
  Sex: Female

DRUGS (1)
  1. PROVENTIL [Suspect]
     Active Substance: ALBUTEROL
     Dosage: UNK

REACTIONS (11)
  - Palpitations [Unknown]
  - Agitation [Unknown]
  - Cough [Unknown]
  - Asthma [Unknown]
  - Product quality issue [Unknown]
  - Dizziness [Unknown]
  - Hypersensitivity [Unknown]
  - Productive cough [Unknown]
  - Respiratory symptom [Unknown]
  - Wheezing [Recovered/Resolved]
  - Dyspnoea [Recovering/Resolving]

NARRATIVE: CASE EVENT DATE: 201509
